FAERS Safety Report 10316996 (Version 2)
Quarter: 2015Q1

REPORT INFORMATION
  Report Type: Other
  Country: US (occurrence: US)
  Receive Date: 20140719
  Receipt Date: 20150203
  Transmission Date: 20150720
  Serious: Yes (Hospitalization, Other)
  Sender: FDA-Public Use
  Company Number: US-GSKPPD-2014GSK019387

PATIENT
  Age: 71 Year
  Sex: Female

DRUGS (3)
  1. CORDARONE [Concomitant]
     Active Substance: AMIODARONE HYDROCHLORIDE
  2. AVANDIA [Suspect]
     Active Substance: ROSIGLITAZONE MALEATE
     Indication: DIABETES MELLITUS
     Dosage: AVANDIA WAS NOT LISTED AMONG THE PATIENTS RECORDS REVIEWED.
     Route: 048
  3. LOPRESSOR [Concomitant]
     Active Substance: METOPROLOL TARTRATE

REACTIONS (2)
  - Cardiac failure congestive [Unknown]
  - Coronary artery disease [Unknown]

NARRATIVE: CASE EVENT DATE: 20030215
